FAERS Safety Report 6933223-8 (Version None)
Quarter: 2010Q3

REPORT INFORMATION
  Report Type: 
  Country: None (occurrence: None)
  Receive Date: 20100820
  Receipt Date: 20100806
  Transmission Date: 20110219
  Serious: Yes (Hospitalization)
  Sender: FDA-Public Use
  Company Number: GB-RANBAXY-2010RR-37384

PATIENT
  Age: 2 Year
  Sex: Male
  Weight: 13 kg

DRUGS (1)
  1. ACETAMINOPHEN [Suspect]
     Dosage: 2400 MG, UNK
     Route: 048
     Dates: start: 20100605, end: 20100605

REACTIONS (2)
  - ABDOMINAL PAIN [None]
  - ACCIDENTAL OVERDOSE [None]
